FAERS Safety Report 22108298 (Version 1)
Quarter: 2023Q1

REPORT INFORMATION
  Report Type: Spontaneous
  Country: US (occurrence: None)
  Receive Date: 20230316
  Receipt Date: 20230316
  Transmission Date: 20230417
  Serious: Yes (Hospitalization, Other)
  Sender: FDA-Public Use
  Company Number: None

PATIENT
  Age: 71 Year
  Sex: Male
  Weight: 110.2 kg

DRUGS (3)
  1. PAXLOVID [Suspect]
     Active Substance: NIRMATRELVIR\RITONAVIR
     Indication: COVID-19
     Dosage: FREQUENCY : DAILY;?
     Route: 048
     Dates: start: 20230312, end: 20230314
  2. TACROLIMUS [Concomitant]
     Active Substance: TACROLIMUS
     Dates: start: 20080601
  3. QUETIAPINE [Concomitant]
     Active Substance: QUETIAPINE
     Dates: start: 20220331

REACTIONS (5)
  - Drug interaction [None]
  - Feeling abnormal [None]
  - Mental status changes [None]
  - Near death experience [None]
  - Therapy interrupted [None]

NARRATIVE: CASE EVENT DATE: 20230315
